FAERS Safety Report 18310931 (Version 1)
Quarter: 2020Q3

REPORT INFORMATION
  Report Type: Spontaneous
  Country: US (occurrence: US)
  Receive Date: 20200924
  Receipt Date: 20200924
  Transmission Date: 20201103
  Serious: No
  Sender: FDA-Public Use
  Company Number: None

PATIENT
  Age: 52 Year
  Sex: Male

DRUGS (1)
  1. WARFARIN (WARFARIN NA (EXELAN) 10MG TAB) [Suspect]
     Active Substance: WARFARIN SODIUM
     Route: 048

REACTIONS (3)
  - Dizziness [None]
  - International normalised ratio increased [None]
  - Dyspnoea [None]

NARRATIVE: CASE EVENT DATE: 20190101
